FAERS Safety Report 5274955-X (Version None)
Quarter: 2007Q1

REPORT INFORMATION
  Report Type: 
  Country: None (occurrence: None)
  Receive Date: 20061207
  Receipt Date: 20060821
  Transmission Date: 20070707
  Serious: No
  Sender: FDA-Public Use
  Company Number: 36278

PATIENT
  Age: 61 Year
  Sex: Female
  Weight: 86.1834 kg

DRUGS (3)
  1. NEVANAC [Suspect]
     Indication: PROPHYLAXIS
     Dates: start: 20060818, end: 20060818
  2. VIGAMOX [Suspect]
     Indication: PROPHYLAXIS
     Dates: start: 20060818, end: 20060818
  3. THYROID TAB [Concomitant]

REACTIONS (2)
  - DIZZINESS [None]
  - NAUSEA [None]
